FAERS Safety Report 18999399 (Version 1)
Quarter: 2021Q1

REPORT INFORMATION
  Report Type: Spontaneous
  Country: US (occurrence: US)
  Receive Date: 20210311
  Receipt Date: 20210311
  Transmission Date: 20210420
  Serious: No
  Sender: FDA-Public Use
  Company Number: US-ASTRAZENECA-2021A102341

PATIENT
  Sex: Female
  Weight: 51.7 kg

DRUGS (2)
  1. IMFINZI [Suspect]
     Active Substance: DURVALUMAB
     Indication: NON-SMALL CELL LUNG CANCER STAGE III
     Dosage: UNKNOWN
     Route: 041
     Dates: start: 2020
  2. RECLAST [Concomitant]
     Active Substance: ZOLEDRONIC ACID
     Indication: OSTEOPOROSIS

REACTIONS (7)
  - Arthralgia [Unknown]
  - Lung disorder [Unknown]
  - Weight increased [Unknown]
  - Emphysema [Unknown]
  - Chromaturia [Unknown]
  - Pollakiuria [Unknown]
  - Dyspnoea [Unknown]
